FAERS Safety Report 16340976 (Version 1)
Quarter: 2019Q2

REPORT INFORMATION
  Report Type: Spontaneous
  Country: CA (occurrence: CA)
  Receive Date: 20190522
  Receipt Date: 20190522
  Transmission Date: 20190711
  Serious: Yes (Hospitalization, Other)
  Sender: FDA-Public Use
  Company Number: CA-TEVA-2019-CA-1051018

PATIENT
  Age: 80 Year
  Sex: Female

DRUGS (12)
  1. RISEDRONATE [Concomitant]
     Active Substance: RISEDRONATE SODIUM
  2. INDACATEROL MALEATE [Concomitant]
     Active Substance: INDACATEROL MALEATE
  3. OXAZEPAM. [Concomitant]
     Active Substance: OXAZEPAM
  4. AMLODIPINE [Concomitant]
     Active Substance: AMLODIPINE BESYLATE
  5. CRESTOR [Concomitant]
     Active Substance: ROSUVASTATIN CALCIUM
  6. LEVOTHYROXINE SODIUM. [Concomitant]
     Active Substance: LEVOTHYROXINE SODIUM
  7. OXYGEN. [Concomitant]
     Active Substance: OXYGEN
  8. PREVACID [Concomitant]
     Active Substance: LANSOPRAZOLE
  9. TRIAMTERENE. [Concomitant]
     Active Substance: TRIAMTERENE
  10. VITAMIN C [Concomitant]
     Active Substance: ASCORBIC ACID
  11. VITAMIN D /00107901/ [Concomitant]
     Active Substance: ERGOCALCIFEROL
  12. SILDENAFIL CITRATE. [Suspect]
     Active Substance: SILDENAFIL CITRATE
     Indication: PULMONARY ARTERIAL HYPERTENSION
     Dosage: 60 MILLIGRAM DAILY;
     Route: 048

REACTIONS (6)
  - Oedema peripheral [Unknown]
  - Vertigo [Unknown]
  - Stomatitis [Unknown]
  - Insomnia [Unknown]
  - Oral discomfort [Unknown]
  - Dyspnoea [Unknown]
